FAERS Safety Report 8856784 (Version 1)
Quarter: 2012Q4

REPORT INFORMATION
  Report Type: Spontaneous
  Country: TW (occurrence: None)
  Receive Date: 20121019
  Receipt Date: 20121019
  Transmission Date: 20130627
  Serious: Yes (Hospitalization, Other)
  Sender: FDA-Public Use
  Company Number: 2012MA012269

PATIENT
  Age: 34 Year
  Sex: Female

DRUGS (2)
  1. VINORELBINE [Suspect]
     Indication: CHEMOTHERAPY
     Route: 042
  2. CISPLATIN [Suspect]

REACTIONS (4)
  - Posterior reversible encephalopathy syndrome [None]
  - Blood pressure increased [None]
  - Dizziness [None]
  - Vomiting [None]
